FAERS Safety Report 10077521 (Version 1)
Quarter: 2014Q2

REPORT INFORMATION
  Report Type: Spontaneous
  Country: US (occurrence: US)
  Receive Date: 20140414
  Receipt Date: 20140414
  Transmission Date: 20141212
  Serious: No
  Sender: FDA-Public Use
  Company Number: US-BANPHARM-20131717

PATIENT
  Age: 68 Year
  Sex: Male
  Weight: 111.13 kg

DRUGS (8)
  1. ALEVE LIQUID GELS 220 MG [Suspect]
     Indication: PAIN
     Dosage: 1 DF, BID,
     Route: 048
     Dates: start: 201309
  2. ALEVE TABLETS [Suspect]
     Indication: PAIN
     Dosage: 2 DF, BID,
     Route: 048
     Dates: end: 201309
  3. VENLAFAXINE [Concomitant]
  4. SIMVASTATIN [Concomitant]
  5. OCCUVITE [Concomitant]
  6. FISH OIL [Concomitant]
  7. ACID REFLUX MEDICATION [Concomitant]
  8. CETIRIZINE [Concomitant]

REACTIONS (1)
  - Drug effect incomplete [Unknown]
